FAERS Safety Report 19416528 (Version 1)
Quarter: 2021Q2

REPORT INFORMATION
  Report Type: Report from Study
  Country: CA (occurrence: CA)
  Receive Date: 20210614
  Receipt Date: 20210614
  Transmission Date: 20210717
  Serious: Yes (Hospitalization)
  Sender: FDA-Public Use
  Company Number: CA-PFIZER INC-2021576804

PATIENT
  Age: 72 Year
  Sex: Female
  Weight: 48 kg

DRUGS (24)
  1. BINIMETINIB [Suspect]
     Active Substance: BINIMETINIB
     Indication: MALIGNANT MELANOMA
     Dosage: 45 MG, TWICE DAILY CONTINUOUS SINCE DAY 1
     Route: 048
     Dates: start: 20210507, end: 20210516
  2. DEXTROMETHORPHAN [Suspect]
     Active Substance: DEXTROMETHORPHAN
     Dosage: 15 MG, DAY?7, DAY 1 AND DAY 14
     Route: 048
     Dates: start: 20210507, end: 20210507
  3. CAFFEINE. [Suspect]
     Active Substance: CAFFEINE
     Dosage: 50 MG, DAY ?7, DAY 1 AND DAY 14
     Route: 048
     Dates: start: 20210430, end: 20210430
  4. CAFFEINE. [Suspect]
     Active Substance: CAFFEINE
     Dosage: 50 MG, DAY ?7, DAY 1 AND DAY 14
     Route: 048
     Dates: start: 20210507, end: 20210507
  5. TRAVOPROST. [Concomitant]
     Active Substance: TRAVOPROST
     Indication: GLAUCOMA
     Dosage: 1 DROP IN EACH EYE AT BEDTIME, 0.004% SOLUTION
     Route: 047
     Dates: start: 2015
  6. MIDAZOLAM. [Suspect]
     Active Substance: MIDAZOLAM
     Dosage: 2 MG, DAY?7, DAY 1 AND DAY 14
     Route: 048
     Dates: start: 20210430, end: 20210430
  7. OMEPRAZOLE. [Suspect]
     Active Substance: OMEPRAZOLE
     Dosage: 20 MG, DAY ?7, DAY 1 AND DAY 14
     Route: 048
     Dates: start: 20210507, end: 20210507
  8. DEXTROMETHORPHAN [Suspect]
     Active Substance: DEXTROMETHORPHAN
     Dosage: 15 MG, DAY?7, DAY 1 AND DAY 14
     Route: 048
     Dates: start: 20210430, end: 20210430
  9. LOSARTAN. [Suspect]
     Active Substance: LOSARTAN
     Dosage: 25 MG, DAY?7, DAY 1 AND DAY 14
     Route: 048
     Dates: start: 20210507, end: 20210507
  10. HYDROCHLOROTHIAZIDE. [Concomitant]
     Active Substance: HYDROCHLOROTHIAZIDE
     Indication: HYPERTENSION
     Dosage: 25 MG, 1X/DAY
     Route: 048
     Dates: start: 2013
  11. NYSTATIN. [Concomitant]
     Active Substance: NYSTATIN
     Indication: ORAL CANDIDIASIS
     Dosage: 100000 IU/ML, ORAL (SWISH AND SWALLOW), 4 TIMES A DAY
     Route: 048
     Dates: start: 20210410
  12. LOPERAMIDE [Concomitant]
     Active Substance: LOPERAMIDE
     Indication: DIARRHOEA
  13. RAMIPRIL. [Concomitant]
     Active Substance: RAMIPRIL
     Indication: HYPERTENSION
     Dosage: 2.5 MG, 1X/DAY
     Route: 048
     Dates: start: 2013
  14. NITROFURANTOIN. [Concomitant]
     Active Substance: NITROFURANTOIN
     Indication: URINARY TRACT INFECTION
     Dosage: 100 MG, 1 CAPSULE TWICE DAILY
     Route: 048
     Dates: start: 20210410
  15. PREDNISONE. [Concomitant]
     Active Substance: PREDNISONE
     Indication: COLITIS
     Dosage: 20 MG, DAILY
     Route: 048
     Dates: start: 202104
  16. MOMETASONE [Concomitant]
     Active Substance: MOMETASONE
     Indication: SEASONAL ALLERGY
     Dosage: 50 UG, IN EACH NOSTRIL DAILY
     Route: 045
     Dates: start: 2000
  17. ENCORAFENIB [Suspect]
     Active Substance: ENCORAFENIB
     Indication: MALIGNANT MELANOMA
     Dosage: 450 MG, ONCE DAILY CONTINUOUS SINCE DAY 1
     Route: 048
     Dates: start: 20210507, end: 20210517
  18. ALENDRONATE [Concomitant]
     Active Substance: ALENDRONATE SODIUM
     Indication: OSTEOPOROSIS
     Dosage: 70 MG, 1 TABLET A WEEK
     Route: 048
     Dates: start: 2007
  19. LOSARTAN. [Suspect]
     Active Substance: LOSARTAN
     Dosage: 25 MG, DAY?7, DAY 1 AND DAY 14
     Route: 048
     Dates: start: 20210430, end: 20210430
  20. HYDROMORPHONE HCL [Concomitant]
     Active Substance: HYDROMORPHONE HYDROCHLORIDE
     Indication: BACK PAIN
     Dosage: 3 MG, 1 CAPSULE ONE DAILY
     Route: 048
     Dates: start: 20201007
  21. MIDAZOLAM. [Suspect]
     Active Substance: MIDAZOLAM
     Dosage: 2 MG, DAY?7, DAY 1 AND DAY 14
     Route: 048
     Dates: start: 20210507, end: 20210507
  22. OMEPRAZOLE. [Suspect]
     Active Substance: OMEPRAZOLE
     Dosage: 20 MG, DAY ?7, DAY 1 AND DAY 14
     Route: 048
     Dates: start: 20210430, end: 20210430
  23. ZOVIRAX [Concomitant]
     Active Substance: ACYCLOVIR
     Indication: ORAL HERPES
     Dosage: LIP APPLICATION, APPLY ON LIPS WHEN HERPETIC RASHES APPEAR
     Dates: start: 2000
  24. LOPERAMIDE [Concomitant]
     Active Substance: LOPERAMIDE
     Indication: COLITIS
     Dosage: 2 MG, 4 TIMES A DAY WHEN DIARRHEA
     Route: 048
     Dates: start: 202102

REACTIONS (2)
  - Chills [Recovered/Resolved]
  - Pyrexia [Recovered/Resolved]

NARRATIVE: CASE EVENT DATE: 20210517
